FAERS Safety Report 5302571-X (Version None)
Quarter: 2007Q2

REPORT INFORMATION
  Report Type: 
  Country: None (occurrence: None)
  Receive Date: 20070419
  Receipt Date: 20070330
  Transmission Date: 20071010
  Serious: Yes (Other)
  Sender: FDA-Public Use
  Company Number: GB-PFIZER INC-2007009743

PATIENT
  Age: 66 Year
  Sex: Male
  Weight: 102 kg

DRUGS (4)
  1. IRINOTECAN HCL [Suspect]
     Route: 042
     Dates: start: 20070123, end: 20070123
  2. ATROPINE [Concomitant]
     Route: 058
  3. DEXAMETHASONE 0.5MG TAB [Concomitant]
     Route: 042
  4. ONDANSETRON [Concomitant]
     Route: 042

REACTIONS (3)
  - ERYTHEMA [None]
  - HYPOAESTHESIA ORAL [None]
  - ORAL PRURITUS [None]
